FAERS Safety Report 20130684 (Version 1)
Quarter: 2021Q4

REPORT INFORMATION
  Report Type: Spontaneous
  Country: US (occurrence: US)
  Receive Date: 20211130
  Receipt Date: 20211130
  Transmission Date: 20220304
  Serious: No
  Sender: FDA-Public Use
  Company Number: US-BEH-2021138679

PATIENT
  Age: 64 Year

DRUGS (1)
  1. HIZENTRA [Suspect]
     Active Substance: HUMAN IMMUNOGLOBULIN G
     Indication: Immunodeficiency common variable
     Dosage: 20 GRAM, QOW
     Route: 058

REACTIONS (5)
  - Infusion site mass [Not Recovered/Not Resolved]
  - Infusion site urticaria [Not Recovered/Not Resolved]
  - Infusion site warmth [Not Recovered/Not Resolved]
  - Infusion site pruritus [Not Recovered/Not Resolved]
  - Infusion site erythema [Not Recovered/Not Resolved]

NARRATIVE: CASE EVENT DATE: 20211121
